FAERS Safety Report 20953995 (Version 2)
Quarter: 2022Q3

REPORT INFORMATION
  Report Type: Spontaneous
  Country: US (occurrence: US)
  Receive Date: 20220614
  Receipt Date: 20220830
  Transmission Date: 20221027
  Serious: Yes (Other)
  Sender: FDA-Public Use
  Company Number: US-JNJFOC-20220616020

PATIENT
  Age: 4 Decade
  Sex: Female

DRUGS (3)
  1. ELMIRON [Suspect]
     Active Substance: PENTOSAN POLYSULFATE SODIUM
     Indication: Cystitis interstitial
     Route: 048
     Dates: start: 2011, end: 2019
  2. ALBUTEROL [Concomitant]
     Active Substance: ALBUTEROL
     Indication: Asthma
     Dates: start: 2004, end: 2010
  3. ALBUTEROL [Concomitant]
     Active Substance: ALBUTEROL
     Dates: start: 2010

REACTIONS (2)
  - Retinal pigmentation [Unknown]
  - Alopecia [Unknown]

NARRATIVE: CASE EVENT DATE: 20170101
